FAERS Safety Report 8355760-4 (Version None)
Quarter: 2012Q2

REPORT INFORMATION
  Report Type: 
  Country: None (occurrence: None)
  Receive Date: 20120514
  Receipt Date: 20120508
  Transmission Date: 20120825
  Serious: No
  Sender: FDA-Public Use
  Company Number: US-PFIZER INC-2012091843

PATIENT
  Sex: Female
  Weight: 53 kg

DRUGS (1)
  1. ATORVASTATIN CALCIUM [Suspect]
     Indication: BLOOD CHOLESTEROL INCREASED
     Dosage: 10 MG, 1X/DAY
     Dates: start: 20120101, end: 20120301

REACTIONS (3)
  - MUSCULAR WEAKNESS [None]
  - FEELING ABNORMAL [None]
  - MYALGIA [None]
